FAERS Safety Report 15566426 (Version 1)
Quarter: 2018Q4

REPORT INFORMATION
  Report Type: Spontaneous
  Country: US (occurrence: US)
  Receive Date: 20181030
  Receipt Date: 20181030
  Transmission Date: 20190205
  Serious: Yes (Other)
  Sender: FDA-Public Use
  Company Number: US-CMP PHARMA-2018CMP00035

PATIENT

DRUGS (1)
  1. TRIAMCINOLONE [Suspect]
     Active Substance: TRIAMCINOLONE
     Indication: OSTEOARTHRITIS
     Dosage: 40 MG, ONCE
     Route: 014

REACTIONS (1)
  - Intraocular pressure increased [Not Recovered/Not Resolved]
